FAERS Safety Report 18968582 (Version 1)
Quarter: 2021Q1

REPORT INFORMATION
  Report Type: Report from Study
  Country: CA (occurrence: CA)
  Receive Date: 20210304
  Receipt Date: 20210304
  Transmission Date: 20210420
  Serious: Yes (Hospitalization)
  Sender: FDA-Public Use
  Company Number: CA-PFIZER INC-2021206360

PATIENT
  Age: 57 Year
  Sex: Male

DRUGS (2)
  1. HUMIRA [Suspect]
     Active Substance: ADALIMUMAB
     Indication: RHEUMATOID ARTHRITIS
     Dosage: 40 MG, CYCLIC 1 EVEY 2 WEEKS
     Route: 058
  2. METHOTREXATE SODIUM. [Suspect]
     Active Substance: METHOTREXATE SODIUM
     Dosage: 20 MG, WEEKLY
     Route: 058

REACTIONS (7)
  - Pulmonary mass [Unknown]
  - Pneumonia [Unknown]
  - Off label use [Unknown]
  - Lung disorder [Unknown]
  - Lymphocyte count increased [Unknown]
  - Hypersensitivity pneumonitis [Unknown]
  - Product use issue [Unknown]
